FAERS Safety Report 7764111-5 (Version None)
Quarter: 2011Q3

REPORT INFORMATION
  Report Type: 
  Country: None (occurrence: None)
  Receive Date: 20110916
  Receipt Date: 20110901
  Transmission Date: 20111222
  Serious: Yes (Other)
  Sender: FDA-Public Use
  Company Number: 1000023431

PATIENT
  Age: 50 Year
  Sex: Male

DRUGS (8)
  1. TOPAMAX (TOPIRAMATE) (TOPIRAMATE) [Concomitant]
  2. LITHIUM CARBONATE [Concomitant]
  3. PMS-PROCYCLIDINE (PROCYCLIDINE) [Concomitant]
  4. CYMBALTA (DULOXETINE HYDROCHLORIDE) (CAPSULES) (DULOXETINE HYDROCHLORI [Concomitant]
  5. RISPERDAL (RISPERIDONE) (TABLETS) (RISPERIDONE) [Concomitant]
  6. CLONAZEPAM (CLONAZEPAM) (TABLETS) (CLONAZEPAM) [Concomitant]
  7. ESCITALOPRAM [Suspect]
     Dosage: DAILY DOSE NOT REPORTED (20 MG), ORAL
     Route: 048
     Dates: start: 20100601, end: 20100701
  8. PANTOPRAZOLE (PANTOPRAZOLE) (TABLETS) (PANTOPRAZOLE) [Concomitant]

REACTIONS (13)
  - SEXUALLY INAPPROPRIATE BEHAVIOUR [None]
  - INSOMNIA [None]
  - HALLUCINATION [None]
  - CONDITION AGGRAVATED [None]
  - VOMITING [None]
  - DEPRESSION [None]
  - NAUSEA [None]
  - MANIA [None]
  - SUICIDAL IDEATION [None]
  - ALCOHOLISM [None]
  - AGGRESSION [None]
  - APATHY [None]
  - PARANOIA [None]
